FAERS Safety Report 5866439-2 (Version None)
Quarter: 2008Q3

REPORT INFORMATION
  Report Type: 
  Country: None (occurrence: None)
  Receive Date: 20080827
  Receipt Date: 20071109
  Transmission Date: 20090109
  Serious: Yes (Other)
  Sender: FDA-Public Use
  Company Number: 07H-163-0313499-00

PATIENT
  Age: 64 Year
  Sex: Male

DRUGS (3)
  1. ETOPOSIDE [Suspect]
     Indication: SMALL CELL LUNG CANCER STAGE UNSPECIFIED
     Dosage: 180 MG, OVER TWO HOURS, INTRANVEOUS DRIP
     Route: 041
     Dates: start: 20071107
  2. CARBOPLATIN [Concomitant]
  3. ONDANSETRON HCL [Concomitant]

REACTIONS (2)
  - DYSPNOEA [None]
  - THROAT TIGHTNESS [None]
